FAERS Safety Report 9482661 (Version 1)
Quarter: 2013Q3

REPORT INFORMATION
  Report Type: Report from Study
  Country: BR (occurrence: BR)
  Receive Date: 20130828
  Receipt Date: 20130828
  Transmission Date: 20140515
  Serious: Yes (Other)
  Sender: FDA-Public Use
  Company Number: BR-ABBOTT-13P-020-1138844-00

PATIENT
  Age: 21 Year
  Sex: Female
  Weight: 66.5 kg

DRUGS (2)
  1. HUMIRA [Suspect]
     Indication: PSORIASIS
     Route: 058
     Dates: start: 20130517
  2. HUMIRA [Suspect]
     Route: 058
     Dates: end: 201307

REACTIONS (2)
  - Drug-induced liver injury [Not Recovered/Not Resolved]
  - Headache [Not Recovered/Not Resolved]
